FAERS Safety Report 7466266-9 (Version None)
Quarter: 2011Q2

REPORT INFORMATION
  Report Type: 
  Country: None (occurrence: None)
  Receive Date: 20110509
  Receipt Date: 20110428
  Transmission Date: 20111010
  Serious: Yes (Life-Threatening, Hospitalization)
  Sender: FDA-Public Use
  Company Number: NL-JNJFOC-20110408457

PATIENT
  Sex: Male
  Weight: 93 kg

DRUGS (14)
  1. GOSERELIN [Concomitant]
     Route: 058
  2. FUROSEMIDE [Concomitant]
     Indication: OEDEMA
     Route: 048
  3. ZYTIGA [Suspect]
     Indication: PROSTATE CANCER METASTATIC
     Route: 048
  4. MICROLAX [Concomitant]
     Indication: CONSTIPATION
     Route: 054
  5. EPREX [Concomitant]
     Indication: HAEMOGLOBIN DECREASED
     Route: 058
  6. OXYNORM [Concomitant]
     Indication: CANCER PAIN
     Route: 048
  7. PREDNISOLONE [Suspect]
     Route: 048
  8. ZOMETA [Concomitant]
     Indication: METASTASES TO BONE
     Route: 042
  9. FUROSEMIDE [Concomitant]
     Route: 048
  10. GOSERELIN [Concomitant]
     Indication: HORMONE THERAPY
     Route: 058
  11. ACETAMINOPHEN [Concomitant]
     Indication: CANCER PAIN
     Route: 048
  12. MS CONTIN [Concomitant]
     Indication: CANCER PAIN
     Route: 048
  13. ZYTIGA [Suspect]
     Route: 048
  14. PREDNISOLONE [Suspect]
     Indication: PROSTATE CANCER METASTATIC
     Route: 048

REACTIONS (2)
  - RENAL FAILURE [None]
  - BLOOD CREATININE INCREASED [None]
